FAERS Safety Report 18923279 (Version 1)
Quarter: 2021Q1

REPORT INFORMATION
  Report Type: Spontaneous
  Country: US (occurrence: US)
  Receive Date: 20210222
  Receipt Date: 20210222
  Transmission Date: 20210420
  Serious: Yes (Death)
  Sender: FDA-Public Use
  Company Number: US-FRESENIUS KABI-FK202101577

PATIENT
  Age: 60 Year
  Sex: Female

DRUGS (6)
  1. RITUXIMAB. [Concomitant]
     Active Substance: RITUXIMAB
     Indication: STEM CELL TRANSPLANT
     Dosage: SALVAGE CHEMOTHERAPY WITH R?ICE
     Route: 065
  2. IFOSFAMIDE. [Concomitant]
     Active Substance: IFOSFAMIDE
     Indication: STEM CELL TRANSPLANT
     Dosage: SALVAGE CHEMOTHERAPY WITH R?ICE
     Route: 065
  3. CARBOPLATIN. [Concomitant]
     Active Substance: CARBOPLATIN
     Indication: STEM CELL TRANSPLANT
     Dosage: SALVAGE CHEMOTHERAPY WITH R?ICE
     Route: 065
  4. FLUDARABINE [Suspect]
     Active Substance: FLUDARABINE PHOSPHATE
     Indication: DIFFUSE LARGE B-CELL LYMPHOMA
     Dosage: CONDITIONING REGIMEN FOR RELAPSE INVOLVING THE CENTRAL NERVOUS SYSTEM OF DIFFUSE LARGE B CELL LYMPHO
     Route: 065
  5. ETOPOSIDE. [Concomitant]
     Active Substance: ETOPOSIDE
     Indication: STEM CELL TRANSPLANT
     Dosage: SALVAGE CHEMOTHERAPY WITH R?ICE
     Route: 065
  6. MELPHALAN. [Suspect]
     Active Substance: MELPHALAN
     Indication: DIFFUSE LARGE B-CELL LYMPHOMA
     Dosage: AS CONDITIONING REGIMEN FOR RELAPSE INVOLVING THE CENTRAL NERVOUS SYSTEM OF DIFFUSE LARGE B CELL LYM
     Route: 065

REACTIONS (1)
  - Graft versus host disease in gastrointestinal tract [Fatal]
